FAERS Safety Report 8477266-4 (Version None)
Quarter: 2012Q2

REPORT INFORMATION
  Report Type: 
  Country: None (occurrence: None)
  Receive Date: 20120629
  Receipt Date: 20120626
  Transmission Date: 20120825
  Serious: Yes (Hospitalization, Disabling)
  Sender: FDA-Public Use
  Company Number: CA-JNJFOC-20120612665

PATIENT
  Sex: Male

DRUGS (3)
  1. CELEBREX [Concomitant]
  2. ASPIRIN [Concomitant]
  3. SIMPONI [Suspect]
     Indication: PSORIATIC ARTHROPATHY
     Route: 058

REACTIONS (1)
  - TRANSIENT ISCHAEMIC ATTACK [None]
